FAERS Safety Report 12957953 (Version 1)
Quarter: 2016Q4

REPORT INFORMATION
  Report Type: Spontaneous
  Country: US (occurrence: US)
  Receive Date: 20161119
  Receipt Date: 20161119
  Transmission Date: 20170207
  Serious: No
  Sender: FDA-Public Use
  Company Number: US-009507513-1610USA012594

PATIENT
  Sex: Female

DRUGS (1)
  1. IMPLANON [Suspect]
     Active Substance: ETONOGESTREL
     Indication: CONTRACEPTION
     Dosage: 1 DF SINGLE ROD INSERTION
     Route: 059

REACTIONS (4)
  - Device deployment issue [Recovered/Resolved]
  - Overdose [Unknown]
  - Complication associated with device [Recovered/Resolved]
  - Incorrect drug administration duration [Unknown]
